FAERS Safety Report 5265628-8 (Version None)
Quarter: 2007Q1

REPORT INFORMATION
  Report Type: 
  Country: None (occurrence: None)
  Receive Date: 20061213
  Receipt Date: 20020918
  Transmission Date: 20070707
  Serious: No
  Sender: FDA-Public Use
  Company Number: 2002UW11392

PATIENT
  Age: 63 Year
  Sex: Female
  Weight: 88.4514 kg

DRUGS (3)
  1. TAMOXIFEN CITRATE [Suspect]
     Indication: BREAST CANCER
     Dates: start: 19870101
  2. VASOTEC [Concomitant]
  3. ATENOLOL [Concomitant]

REACTIONS (3)
  - CATARACT [None]
  - DISEASE RECURRENCE [None]
  - WEIGHT INCREASED [None]
